FAERS Safety Report 10283021 (Version 3)
Quarter: 2015Q1

REPORT INFORMATION
  Report Type: Spontaneous
  Country: JP (occurrence: JP)
  Receive Date: 20140708
  Receipt Date: 20150205
  Transmission Date: 20150720
  Serious: Yes (Death, Other)
  Sender: FDA-Public Use
  Company Number: JP-ROCHE-1430773

PATIENT
  Age: 76 Year
  Sex: Female

DRUGS (7)
  1. REHABILITATION THERAPY [Concomitant]
  2. DENOSINE [Suspect]
     Active Substance: GANCICLOVIR
     Indication: CYTOMEGALOVIRUS TEST POSITIVE
  3. DENOSINE [Suspect]
     Active Substance: GANCICLOVIR
     Indication: PNEUMONIA CYTOMEGALOVIRAL
  4. IMIPENEM-CILASTATIN SODIUM [Suspect]
     Active Substance: CILASTATIN SODIUM\IMIPENEM
     Indication: PRODUCT USED FOR UNKNOWN INDICATION
     Route: 065
     Dates: start: 20140629, end: 20140701
  5. METHYLPREDNISOLONE. [Suspect]
     Active Substance: METHYLPREDNISOLONE
     Indication: PRODUCT USED FOR UNKNOWN INDICATION
     Route: 065
     Dates: start: 20140620, end: 20140622
  6. DENOSINE [Suspect]
     Active Substance: GANCICLOVIR
     Indication: CYTOMEGALOVIRUS INFECTION
     Route: 041
     Dates: start: 20140626, end: 20140702
  7. MINOMYCIN [Suspect]
     Active Substance: MINOCYCLINE HYDROCHLORIDE
     Indication: PRODUCT USED FOR UNKNOWN INDICATION
     Dosage: 2 AMP
     Route: 065
     Dates: start: 20140702, end: 20140702

REACTIONS (5)
  - Blood pressure decreased [None]
  - Dehydration [None]
  - Enterococcal sepsis [Fatal]
  - Bone marrow failure [Unknown]
  - Pneumonia pseudomonal [Fatal]

NARRATIVE: CASE EVENT DATE: 20140702
